FAERS Safety Report 14522993 (Version 4)
Quarter: 2019Q1

REPORT INFORMATION
  Report Type: Spontaneous
  Country: US (occurrence: US)
  Receive Date: 20180212
  Receipt Date: 20190228
  Transmission Date: 20190417
  Serious: Yes (Other)
  Sender: FDA-Public Use
  Company Number: US-GLAXOSMITHKLINE-US2018GSK023069

PATIENT
  Age: 34 Year
  Sex: Female
  Weight: 30.25 kg

DRUGS (1)
  1. BENLYSTA [Suspect]
     Active Substance: BELIMUMAB
     Indication: SYSTEMIC LUPUS ERYTHEMATOSUS
     Dosage: 720 MG, UNK
     Route: 042
     Dates: start: 20111007, end: 20180118

REACTIONS (5)
  - Malignant melanoma [Recovered/Resolved]
  - Exposure during pregnancy [Recovered/Resolved]
  - Live birth [Recovered/Resolved]
  - Skin neoplasm excision [Recovered/Resolved]
  - Neoplasm skin [Recovered/Resolved]

NARRATIVE: CASE EVENT DATE: 20170422
